FAERS Safety Report 19251374 (Version 2)
Quarter: 2021Q3

REPORT INFORMATION
  Report Type: Report from Study
  Country: US (occurrence: US)
  Receive Date: 20210512
  Receipt Date: 20210702
  Transmission Date: 20211014
  Serious: No
  Sender: FDA-Public Use
  Company Number: NVSC2021US106302

PATIENT
  Age: 80 Year
  Sex: Female

DRUGS (1)
  1. LOSARTAN. [Suspect]
     Active Substance: LOSARTAN
     Indication: PRODUCT USED FOR UNKNOWN INDICATION
     Dosage: UNK
     Route: 065
     Dates: start: 202006, end: 202006

REACTIONS (2)
  - Heart rate irregular [Recovered/Resolved]
  - Wound [Unknown]

NARRATIVE: CASE EVENT DATE: 202006
